FAERS Safety Report 12005782 (Version 1)
Quarter: 2016Q1

REPORT INFORMATION
  Report Type: Spontaneous
  Country: US (occurrence: US)
  Receive Date: 20160205
  Receipt Date: 20160205
  Transmission Date: 20160526
  Serious: No
  Sender: FDA-Public Use
  Company Number: US-ASTRAZENECA-2016SE08779

PATIENT
  Sex: Female

DRUGS (1)
  1. CRESTOR [Suspect]
     Active Substance: ROSUVASTATIN CALCIUM
     Route: 048

REACTIONS (7)
  - Injury [Unknown]
  - Muscle spasms [Unknown]
  - Renal disorder [Unknown]
  - Fall [Unknown]
  - Lung disorder [Unknown]
  - Dysstasia [Unknown]
  - Memory impairment [Unknown]
